FAERS Safety Report 5587065-9 (Version None)
Quarter: 2008Q1

REPORT INFORMATION
  Report Type: 
  Country: None (occurrence: None)
  Receive Date: 20080110
  Receipt Date: 20080103
  Transmission Date: 20080703
  Serious: Yes (Other)
  Sender: FDA-Public Use
  Company Number: B0361264A

PATIENT
  Age: 47 Year
  Sex: Female

DRUGS (2)
  1. PAROXETINE HYDROCHLORIDE [Suspect]
     Indication: DEPRESSION
     Route: 065
     Dates: start: 20000627, end: 20020501
  2. AMITRIPTYLINE HCL [Concomitant]
     Dates: start: 20010611

REACTIONS (16)
  - ADVERSE DRUG REACTION [None]
  - CONFUSIONAL STATE [None]
  - CONVULSION [None]
  - DISTURBANCE IN ATTENTION [None]
  - DIZZINESS [None]
  - FATIGUE [None]
  - HYPERHIDROSIS [None]
  - INFLUENZA LIKE ILLNESS [None]
  - LETHARGY [None]
  - MEMORY IMPAIRMENT [None]
  - MUSCLE SPASMS [None]
  - NIGHTMARE [None]
  - PARAESTHESIA [None]
  - TREMOR [None]
  - VERTIGO [None]
  - WITHDRAWAL SYNDROME [None]
